FAERS Safety Report 9349733 (Version 1)
Quarter: 2013Q2

REPORT INFORMATION
  Report Type: Spontaneous
  Country: US (occurrence: US)
  Receive Date: 20130614
  Receipt Date: 20130614
  Transmission Date: 20140414
  Serious: Yes (Other)
  Sender: FDA-Public Use
  Company Number: US-TARO-2013P1006943

PATIENT
  Age: 75 Year
  Sex: Female
  Weight: 88.45 kg

DRUGS (3)
  1. HYDROCORTISONE [Suspect]
     Indication: PRURITUS
     Route: 061
     Dates: start: 2003
  2. HYDROCORTISONE CREAM 1% PLUS 12 MOISTURIZERS [Suspect]
     Indication: PRURITUS
     Route: 061
     Dates: start: 20130526, end: 20130530
  3. UNSPECIFIED PRESCRIBED MEDICATIONS [Concomitant]

REACTIONS (2)
  - Drug ineffective [Not Recovered/Not Resolved]
  - Cerebrovascular accident [Recovering/Resolving]
